FAERS Safety Report 9826418 (Version 1)
Quarter: 2014Q1

REPORT INFORMATION
  Report Type: Spontaneous
  Country: US (occurrence: US)
  Receive Date: 20140117
  Receipt Date: 20140117
  Transmission Date: 20141002
  Serious: No
  Sender: FDA-Public Use
  Company Number: US-BIOGENIDEC-2014BI001356

PATIENT
  Sex: Female

DRUGS (3)
  1. TECFIDERA [Suspect]
     Indication: MULTIPLE SCLEROSIS
     Dates: end: 20131221
  2. ASPIRIN [Concomitant]
  3. SYNTHROID [Concomitant]

REACTIONS (5)
  - Frequent bowel movements [Unknown]
  - Contusion [Unknown]
  - Faeces soft [Unknown]
  - Abdominal pain upper [Unknown]
  - Abdominal discomfort [Unknown]
